FAERS Safety Report 20674511 (Version 1)
Quarter: 2022Q2

REPORT INFORMATION
  Report Type: Spontaneous
  Country: CA (occurrence: CA)
  Receive Date: 20220405
  Receipt Date: 20220405
  Transmission Date: 20220720
  Serious: Yes (Hospitalization)
  Sender: FDA-Public Use
  Company Number: CA-PFIZER INC-202200482836

PATIENT
  Age: 64 Year
  Sex: Male
  Weight: 77 kg

DRUGS (26)
  1. DOXORUBICIN HYDROCHLORIDE [Suspect]
     Active Substance: DOXORUBICIN HYDROCHLORIDE
     Indication: Hepatic cancer metastatic
     Dosage: UNK
  2. VINCRISTINE SULFATE [Suspect]
     Active Substance: VINCRISTINE SULFATE
     Indication: Hepatic cancer metastatic
     Dosage: UNK
  3. CYCLOPHOSPHAMIDE [Suspect]
     Active Substance: CYCLOPHOSPHAMIDE
     Indication: Hepatic cancer metastatic
     Dosage: UNK
  4. RITUXAN [Suspect]
     Active Substance: RITUXIMAB
     Indication: Hepatic cancer metastatic
     Dosage: 720 MG
  5. ACETAMINOPHEN [Concomitant]
     Active Substance: ACETAMINOPHEN
  6. ALLOPURINOL [Concomitant]
     Active Substance: ALLOPURINOL
  7. CALCIUM [Concomitant]
     Active Substance: CALCIUM
  8. DEXAMETHASONE [Concomitant]
     Active Substance: DEXAMETHASONE
     Route: 065
  9. DIPHENHYDRAMINE [Concomitant]
     Active Substance: DIPHENHYDRAMINE
  10. ENOXAPARIN [Concomitant]
     Active Substance: ENOXAPARIN
  11. FILGRASTIM [Concomitant]
     Active Substance: FILGRASTIM
  12. FRAGMIN [Concomitant]
     Active Substance: DALTEPARIN SODIUM
  13. FUROSEMIDE [Concomitant]
     Active Substance: FUROSEMIDE
     Route: 065
  14. HYDROMORPHONE [Concomitant]
     Active Substance: HYDROMORPHONE
  15. INSULIN NOS [Concomitant]
     Active Substance: INSULIN NOS
  16. K-DUR [Concomitant]
     Active Substance: POTASSIUM CHLORIDE
  17. LEVOPHED [Concomitant]
     Active Substance: NOREPINEPHRINE BITARTRATE
  18. LORAZEPAM [Concomitant]
     Active Substance: LORAZEPAM
     Route: 065
  19. METHYLPREDNISOLONE SODIUM SUCCINATE [Concomitant]
     Active Substance: METHYLPREDNISOLONE SODIUM SUCCINATE
  20. ONDANSETRON [Concomitant]
     Active Substance: ONDANSETRON
  21. PANTOPRAZOLE [Concomitant]
     Active Substance: PANTOPRAZOLE
  22. POLYETHYLENE GLYCOLS [Concomitant]
     Active Substance: POLYETHYLENE GLYCOLS
  23. PROCHLORPERAZINE [Concomitant]
     Active Substance: PROCHLORPERAZINE
  24. QUETIAPINE [Concomitant]
     Active Substance: QUETIAPINE
  25. VALACYCLOVIR [Concomitant]
     Active Substance: VALACYCLOVIR HYDROCHLORIDE
  26. ZOPICLONE [Concomitant]
     Active Substance: ZOPICLONE

REACTIONS (1)
  - Febrile neutropenia [Recovered/Resolved]
